FAERS Safety Report 5316021-0 (Version None)
Quarter: 2007Q2

REPORT INFORMATION
  Report Type: 
  Country: None (occurrence: None)
  Receive Date: 20070503
  Receipt Date: 20070320
  Transmission Date: 20071010
  Serious: Yes (Hospitalization, Other)
  Sender: FDA-Public Use
  Company Number: US-PFIZER INC-2006142793

PATIENT
  Sex: Male
  Weight: 88.5 kg

DRUGS (1)
  1. BEXTRA [Suspect]
     Indication: ARTHRALGIA
     Dates: start: 20040501, end: 20041001

REACTIONS (2)
  - LOSS OF LIBIDO [None]
  - MYOCARDIAL INFARCTION [None]
